FAERS Safety Report 7270898-0 (Version None)
Quarter: 2011Q1

REPORT INFORMATION
  Report Type: 
  Country: None (occurrence: None)
  Receive Date: 20110202
  Receipt Date: 20110125
  Transmission Date: 20110831
  Serious: Yes (Hospitalization)
  Sender: FDA-Public Use
  Company Number: JP-AMGEN-JPNCT2011006182

PATIENT
  Age: 58 Year
  Sex: Male
  Weight: 55 kg

DRUGS (13)
  1. CORTICOSTEROIDS [Concomitant]
     Dosage: UNK
     Route: 065
  2. RIBOVIX [Concomitant]
     Dosage: UNK
     Route: 048
  3. DIOVAN [Concomitant]
     Dosage: UNK
     Route: 048
  4. NORVASC [Concomitant]
     Dosage: UNK
     Route: 048
  5. NERIPROCT [Concomitant]
     Dosage: UNK
     Route: 054
  6. LOXONIN                            /00890701/ [Concomitant]
     Dosage: UNK
     Route: 048
  7. PANITUMUMAB [Suspect]
     Indication: COLORECTAL CANCER
     Dosage: 6 MG/KG, Q2WK
     Route: 041
     Dates: start: 20101102
  8. CALCIUM LEVOFOLINATE [Concomitant]
     Indication: COLORECTAL CANCER
     Route: 041
     Dates: start: 20101102
  9. ANTIHISTAMINES [Concomitant]
     Dosage: UNK
     Route: 065
  10. POSTERISAN FORTE                   /01567801/ [Concomitant]
     Dosage: UNK
     Route: 062
  11. IRINOTECAN HYDROCHLORIDE [Suspect]
     Indication: COLORECTAL CANCER
     Dosage: 140 MG, Q2WK
     Route: 041
     Dates: start: 20101102
  12. FLUOROURACIL [Concomitant]
     Indication: COLORECTAL CANCER
     Dosage: UNK UNK, Q2WK
     Dates: start: 20101102
  13. FERO-GRADUMET                      /00023503/ [Concomitant]
     Dosage: UNK
     Route: 048

REACTIONS (2)
  - FEBRILE NEUTROPENIA [None]
  - STOMATITIS [None]
